FAERS Safety Report 13093993 (Version 5)
Quarter: 2018Q4

REPORT INFORMATION
  Report Type: Report from Study
  Country: US (occurrence: US)
  Receive Date: 20170106
  Receipt Date: 20181217
  Transmission Date: 20190204
  Serious: Yes (Hospitalization)
  Sender: FDA-Public Use
  Company Number: US-AMGEN-USACT2017001260

PATIENT
  Age: 70 Year
  Sex: Female
  Weight: 66.55 kg

DRUGS (12)
  1. SENNA [Concomitant]
     Active Substance: SENNA LEAF\SENNOSIDES\SENNOSIDES A AND B
     Dosage: 1 UNK, UNK
     Route: 048
     Dates: start: 2016
  2. AMBIEN [Concomitant]
     Active Substance: ZOLPIDEM TARTRATE
     Dosage: 5 MG, UNK
     Route: 048
     Dates: start: 2011
  3. MIRALAX [Concomitant]
     Active Substance: POLYETHYLENE GLYCOL 3350
     Dosage: 1 UNK, UNK
     Route: 048
     Dates: start: 2016
  4. ATIVAN [Concomitant]
     Active Substance: LORAZEPAM
     Dosage: 0.5 MG, UNK
     Route: 048
     Dates: start: 2011
  5. TALIMOGENE LAHERPAREPVEC [Suspect]
     Active Substance: TALIMOGENE LAHERPAREPVEC
     Indication: HEPATIC NEOPLASM
     Dosage: 1 ML, UNK
     Route: 025
     Dates: start: 20161212, end: 20161212
  6. LIPITOR [Concomitant]
     Active Substance: ATORVASTATIN CALCIUM
     Dosage: 10 MG, UNK
     Route: 048
     Dates: start: 2011
  7. TURMERIC [Concomitant]
     Active Substance: HERBALS\TURMERIC
     Dosage: 1 UNK, UNK
     Route: 048
     Dates: start: 2016
  8. GERITOL COMPLETE [Concomitant]
     Dosage: 1 UNK, UNK
     Route: 048
     Dates: start: 1996
  9. PROCHLORPERAZINE. [Concomitant]
     Active Substance: PROCHLORPERAZINE
     Dosage: 10 MG, UNK
     Route: 048
     Dates: start: 2014
  10. ACETAMINOPHEN W/HYDROCODONE [Concomitant]
     Active Substance: ACETAMINOPHEN\HYDROCODONE
     Dosage: 5 MG, UNK
     Route: 048
     Dates: start: 20160531
  11. ZOLOFT [Concomitant]
     Active Substance: SERTRALINE HYDROCHLORIDE
     Dosage: 100 MG, UNK
     Route: 048
     Dates: start: 20161031
  12. IRON [Concomitant]
     Active Substance: IRON
     Dosage: 250 MG, UNK
     Route: 048
     Dates: start: 201610

REACTIONS (1)
  - Aspartate aminotransferase increased [Recovered/Resolved]

NARRATIVE: CASE EVENT DATE: 20170101
